FAERS Safety Report 14646966 (Version 2)
Quarter: 2018Q1

REPORT INFORMATION
  Report Type: Spontaneous
  Country: US (occurrence: US)
  Receive Date: 20180316
  Receipt Date: 20180329
  Transmission Date: 20180509
  Serious: No
  Sender: FDA-Public Use
  Company Number: US-HORIZON-PEN-0174-2018

PATIENT
  Age: 77 Year
  Sex: Male

DRUGS (9)
  1. RANEXA [Concomitant]
     Active Substance: RANOLAZINE
  2. LOSARTAN. [Concomitant]
     Active Substance: LOSARTAN
  3. ISOSORBIDE. [Concomitant]
     Active Substance: ISOSORBIDE
  4. CLOPIDOGREL [Concomitant]
     Active Substance: CLOPIDOGREL BISULFATE
  5. DILAUDID [Concomitant]
     Active Substance: HYDROMORPHONE HYDROCHLORIDE
  6. ATORVASTATIN [Concomitant]
     Active Substance: ATORVASTATIN
  7. BABY ASPIRIN [Concomitant]
     Active Substance: ASPIRIN
  8. OXYCONTIN [Concomitant]
     Active Substance: OXYCODONE HYDROCHLORIDE
  9. PENNSAID [Suspect]
     Active Substance: DICLOFENAC SODIUM
     Indication: ARTHRITIS
     Dosage: 1 SAMPLE PACKET TWICE A DAY

REACTIONS (3)
  - Application site pruritus [Recovered/Resolved]
  - Urticaria [Not Recovered/Not Resolved]
  - Application site pain [Recovered/Resolved]
